FAERS Safety Report 7437902-8 (Version None)
Quarter: 2011Q2

REPORT INFORMATION
  Report Type: 
  Country: None (occurrence: None)
  Receive Date: 20110426
  Receipt Date: 20110418
  Transmission Date: 20111010
  Serious: Yes (Hospitalization)
  Sender: FDA-Public Use
  Company Number: B0714180A

PATIENT
  Age: 88 Year
  Sex: Male

DRUGS (3)
  1. SERETIDE [Suspect]
     Indication: ASTHMA
     Route: 048
     Dates: start: 20090601
  2. UNIPHYL [Concomitant]
     Indication: ASTHMA
     Route: 048
     Dates: start: 20090601
  3. MEPTIN AIR [Concomitant]
     Indication: ASTHMA
     Route: 055
     Dates: start: 20090601

REACTIONS (2)
  - STATUS ASTHMATICUS [None]
  - INCORRECT ROUTE OF DRUG ADMINISTRATION [None]
